FAERS Safety Report 9892805 (Version 5)
Quarter: 2014Q2

REPORT INFORMATION
  Report Type: Spontaneous
  Country: US (occurrence: US)
  Receive Date: 20140212
  Receipt Date: 20140411
  Transmission Date: 20141212
  Serious: Yes (Other)
  Sender: FDA-Public Use
  Company Number: US-AMGEN-USASP2014009606

PATIENT
  Age: 67 Year
  Sex: Male
  Weight: 59.41 kg

DRUGS (3)
  1. PROCRIT [Suspect]
     Indication: RENAL FAILURE CHRONIC
     Dosage: 60000 UNIT, QWK
     Route: 058
     Dates: start: 20110330, end: 20140207
  2. PROCRIT [Suspect]
     Indication: NEPHROGENIC ANAEMIA
  3. VIDAZA [Concomitant]
     Dosage: UNK

REACTIONS (5)
  - Bone marrow failure [Unknown]
  - Myelodysplastic syndrome [Unknown]
  - Haemoglobin decreased [Unknown]
  - Therapeutic response decreased [Unknown]
  - Aplasia pure red cell [Unknown]
